FAERS Safety Report 6576319-5 (Version None)
Quarter: 2010Q1

REPORT INFORMATION
  Report Type: 
  Country: None (occurrence: None)
  Receive Date: 20100210
  Receipt Date: 20100128
  Transmission Date: 20100710
  Serious: Yes (Other)
  Sender: FDA-Public Use
  Company Number: DE-RANBAXY-2010RR-30794

PATIENT
  Sex: Male

DRUGS (1)
  1. CEFACLOR RATIOPHARM 125MG/5ML TS [Suspect]
     Dosage: 2.5 ML, QD
     Route: 048
     Dates: start: 20091219

REACTIONS (1)
  - HAEMATOCHEZIA [None]
